FAERS Safety Report 18061547 (Version 1)
Quarter: 2020Q3

REPORT INFORMATION
  Report Type: Spontaneous
  Country: CA (occurrence: CA)
  Receive Date: 20200723
  Receipt Date: 20200723
  Transmission Date: 20201103
  Serious: Yes (Hospitalization)
  Sender: FDA-Public Use
  Company Number: CA-PFIZER INC-2020277302

PATIENT
  Age: 5 Year
  Sex: Male
  Weight: 30 kg

DRUGS (15)
  1. CLARITHROMYCIN. [Concomitant]
     Active Substance: CLARITHROMYCIN
     Dosage: UNK
  2. DEXMEDETOMIDINE. [Concomitant]
     Active Substance: DEXMEDETOMIDINE
     Dosage: UNK
  3. POLYETHYLENE GLYCOL [MACROGOL] [Concomitant]
     Active Substance: POLYETHYLENE GLYCOLS
     Dosage: UNK
  4. VENTOLIN HFA [Suspect]
     Active Substance: ALBUTEROL SULFATE
     Dosage: 500 UG, 1 EVERY 4 HOURS
     Route: 055
  5. VENTOLIN HFA [Suspect]
     Active Substance: ALBUTEROL SULFATE
     Dosage: 1000 UG, 1 EVERY 1 HOURS
     Route: 055
  6. FLUTICASONE. [Concomitant]
     Active Substance: FLUTICASONE
     Dosage: UNK
  7. METHYLPREDNISOLONE SODIUM SUCCINATE. [Suspect]
     Active Substance: METHYLPREDNISOLONE SODIUM SUCCINATE
     Dosage: 30 MG, 1 EVERY 6 HOURS
     Route: 042
  8. METHYLPREDNISOLONE SODIUM SUCCINATE. [Suspect]
     Active Substance: METHYLPREDNISOLONE SODIUM SUCCINATE
     Dosage: 30 MG, 1 EVERY 12 HOURS
     Route: 042
  9. DECADRON [Suspect]
     Active Substance: DEXAMETHASONE
     Dosage: 16 MG
     Route: 048
  10. VENTOLIN [Suspect]
     Active Substance: ALBUTEROL SULFATE
     Dosage: 200 UG, 1 EVERY 4 HOURS
     Route: 042
  11. ACETAMINOPHEN. [Concomitant]
     Active Substance: ACETAMINOPHEN
     Dosage: UNK
  12. AZITHROMYCIN ANHYDROUS. [Concomitant]
     Active Substance: AZITHROMYCIN ANHYDROUS
     Dosage: UNK
  13. CLONIDINE. [Concomitant]
     Active Substance: CLONIDINE
     Dosage: UNK
  14. VENTOLIN HFA [Suspect]
     Active Substance: ALBUTEROL SULFATE
     Dosage: 200 UG, 1 EVERY 4 HOURS
     Route: 055
  15. CEFOTAXIME [Concomitant]
     Active Substance: CEFOTAXIME SODIUM
     Dosage: UNK

REACTIONS (4)
  - Hyperglycaemia [Unknown]
  - Vomiting [Unknown]
  - Abdominal pain [Unknown]
  - Gastrointestinal haemorrhage [Unknown]
